FAERS Safety Report 15616069 (Version 1)
Quarter: 2018Q4

REPORT INFORMATION
  Report Type: Report from Study
  Country: BR (occurrence: BR)
  Receive Date: 20181114
  Receipt Date: 20181114
  Transmission Date: 20190205
  Serious: Yes (Hospitalization, Other)
  Sender: FDA-Public Use
  Company Number: BR-ACTELION-A-CH2018-181631

PATIENT
  Age: 39 Year
  Sex: Female

DRUGS (1)
  1. MIGLUSTAT CAPSULE 100 MG NPC ROW [Suspect]
     Active Substance: MIGLUSTAT
     Indication: NIEMANN-PICK DISEASE
     Dosage: UNK
     Route: 048
     Dates: start: 2014

REACTIONS (3)
  - Tracheostomy [Unknown]
  - Feeding tube user [Unknown]
  - Weight decreased [Unknown]
